FAERS Safety Report 9921917 (Version 1)
Quarter: 2014Q1

REPORT INFORMATION
  Report Type: Spontaneous
  Country: US (occurrence: US)
  Receive Date: 20140225
  Receipt Date: 20140225
  Transmission Date: 20141002
  Serious: Yes (Hospitalization)
  Sender: FDA-Public Use
  Company Number: US-LUNDBECK-DKLU1097537

PATIENT
  Age: 8 Year
  Sex: Male

DRUGS (3)
  1. SABRIL (TABLET) [Suspect]
     Indication: CONVULSION
     Route: 048
  2. DILANTIN [Concomitant]
     Indication: PRODUCT USED FOR UNKNOWN INDICATION
  3. DEPAKOTE [Concomitant]
     Indication: PRODUCT USED FOR UNKNOWN INDICATION

REACTIONS (2)
  - Convulsion [Recovered/Resolved]
  - Upper respiratory tract infection [Not Recovered/Not Resolved]
